FAERS Safety Report 10939619 (Version 2)
Quarter: 2015Q2

REPORT INFORMATION
  Report Type: Spontaneous
  Country: US (occurrence: US)
  Receive Date: 20150322
  Receipt Date: 20150525
  Transmission Date: 20150821
  Serious: No
  Sender: FDA-Public Use
  Company Number: US-JNJFOC-20130608943

PATIENT

DRUGS (2)
  1. RISPERIDONE. [Suspect]
     Active Substance: RISPERIDONE
     Indication: SCHIZOPHRENIA
     Route: 065
  2. ARIPIPRAZOLE. [Suspect]
     Active Substance: ARIPIPRAZOLE
     Indication: SCHIZOPHRENIA
     Route: 048

REACTIONS (9)
  - Akathisia [Unknown]
  - Somnolence [Unknown]
  - Insomnia [Unknown]
  - Agitation [Unknown]
  - Anxiety [Unknown]
  - Psychotic disorder [Unknown]
  - Blood prolactin increased [Unknown]
  - Dizziness [Unknown]
  - Nausea [Unknown]
